FAERS Safety Report 16156128 (Version 2)
Quarter: 2024Q2

REPORT INFORMATION
  Report Type: Other
  Country: SK (occurrence: SK)
  Receive Date: 20190404
  Receipt Date: 20240429
  Transmission Date: 20240716
  Serious: Yes (Other)
  Sender: FDA-Public Use
  Company Number: PL-KRKA-SK2018K12734LIT

PATIENT
  Age: 63 Year
  Sex: Female

DRUGS (1)
  1. CAPECITABINE [Suspect]
     Active Substance: CAPECITABINE
     Indication: Breast cancer metastatic
     Dosage: 4 CYCLES
     Route: 048
     Dates: start: 201403

REACTIONS (4)
  - Pelvic venous thrombosis [Unknown]
  - Oedema peripheral [Unknown]
  - Peripheral artery thrombosis [Unknown]
  - Deep vein thrombosis [Unknown]
